FAERS Safety Report 19679536 (Version 3)
Quarter: 2021Q3

REPORT INFORMATION
  Report Type: Spontaneous
  Country: JP (occurrence: JP)
  Receive Date: 20210809
  Receipt Date: 20210917
  Transmission Date: 20211014
  Serious: Yes (Death, Other)
  Sender: FDA-Public Use
  Company Number: JP-009507513-2108JPN000211J

PATIENT
  Age: 9 Decade
  Sex: Male

DRUGS (6)
  1. VENETOCLAX. [Concomitant]
     Active Substance: VENETOCLAX
     Dosage: UNK
     Route: 065
  2. SIVEXTRO [Suspect]
     Active Substance: TEDIZOLID PHOSPHATE
     Indication: SOFT TISSUE INFECTION
     Dosage: 200 MILLIGRAM, QD
     Route: 041
     Dates: start: 20210709, end: 202107
  3. FLUCONAZOLE. [Concomitant]
     Active Substance: FLUCONAZOLE
     Dosage: UNK
     Route: 065
  4. SIVEXTRO [Suspect]
     Active Substance: TEDIZOLID PHOSPHATE
     Indication: SKIN INFECTION
  5. VIDAZA [Concomitant]
     Active Substance: AZACITIDINE
     Dosage: UNK
     Route: 065
  6. VANCOMYCIN [VANCOMYCIN HYDROCHLORIDE] [Concomitant]
     Active Substance: VANCOMYCIN HYDROCHLORIDE
     Dosage: UNK
     Route: 065

REACTIONS (2)
  - Death [Fatal]
  - Hepatic function abnormal [Recovering/Resolving]

NARRATIVE: CASE EVENT DATE: 20210710
